FAERS Safety Report 8318034-3 (Version None)
Quarter: 2012Q2

REPORT INFORMATION
  Report Type: 
  Country: None (occurrence: None)
  Receive Date: 20120427
  Receipt Date: 20120424
  Transmission Date: 20120825
  Serious: Yes (Hospitalization)
  Sender: FDA-Public Use
  Company Number: DE-ROCHE-1005446

PATIENT
  Age: 51 Year
  Sex: Female
  Weight: 60 kg

DRUGS (5)
  1. ACTEMRA [Suspect]
     Indication: RHEUMATOID ARTHRITIS
     Dosage: LAST DOSE PRIOR TO SAE 06/OCT/2011
     Route: 042
     Dates: start: 20110905
  2. OMEPRAZOLE [Concomitant]
     Dates: start: 20100520
  3. METHOTREXATE [Concomitant]
     Dates: start: 20110712
  4. FOLSAURE [Concomitant]
     Dates: start: 20110712
  5. DEKRISTOL [Concomitant]
     Dates: start: 20100128

REACTIONS (1)
  - MIGRAINE [None]
